FAERS Safety Report 9961989 (Version 1)
Quarter: 2014Q1

REPORT INFORMATION
  Report Type: Report from Study
  Country: US (occurrence: US)
  Receive Date: 20140305
  Receipt Date: 20140305
  Transmission Date: 20141002
  Serious: No
  Sender: FDA-Public Use
  Company Number: US-ABBVIE-13P-163-1114530-00

PATIENT
  Age: 51 Year
  Sex: Male

DRUGS (6)
  1. HUMIRA [Suspect]
     Indication: PSORIASIS
     Route: 058
     Dates: start: 20130411
  2. AZOR [Concomitant]
     Indication: HYPERTENSION
  3. PRAVASTATIN [Concomitant]
     Indication: BLOOD CHOLESTEROL INCREASED
  4. LANTANOPROST [Concomitant]
     Indication: GLAUCOMA
     Dosage: EYE DROPS
  5. ELIDEL [Concomitant]
     Indication: PRODUCT USED FOR UNKNOWN INDICATION
  6. CLOBEX [Concomitant]
     Indication: PRODUCT USED FOR UNKNOWN INDICATION

REACTIONS (4)
  - Musculoskeletal pain [Not Recovered/Not Resolved]
  - Injection site erythema [Not Recovered/Not Resolved]
  - Pain in extremity [Recovered/Resolved]
  - Injection site bruising [Recovering/Resolving]
